FAERS Safety Report 5636819-9 (Version None)
Quarter: 2008Q1

REPORT INFORMATION
  Report Type: 
  Country: None (occurrence: None)
  Receive Date: 20080225
  Receipt Date: 20080211
  Transmission Date: 20080703
  Serious: Yes (Other)
  Sender: FDA-Public Use
  Company Number: US-ROCHE-547016

PATIENT
  Sex: Female

DRUGS (1)
  1. BONIVA [Suspect]
     Indication: OSTEOPOROSIS
     Dosage: FORMULATION REPORTED AS INJECTION
     Route: 065

REACTIONS (3)
  - BACK PAIN [None]
  - PHARYNGEAL OEDEMA [None]
  - URTICARIA [None]
